FAERS Safety Report 6436299-X (Version None)
Quarter: 2009Q4

REPORT INFORMATION
  Report Type: 
  Country: None (occurrence: None)
  Receive Date: 20091111
  Receipt Date: 20091104
  Transmission Date: 20100525
  Serious: Yes (Hospitalization)
  Sender: FDA-Public Use
  Company Number: B0537335A

PATIENT
  Sex: Female
  Weight: 52 kg

DRUGS (9)
  1. ARIXTRA [Suspect]
     Indication: BEDRIDDEN
     Dosage: 7.5MG PER DAY
     Route: 058
     Dates: end: 20080824
  2. ALDALIX [Concomitant]
     Route: 065
  3. LAROXYL [Concomitant]
     Route: 065
  4. CALCIUM D3 [Concomitant]
     Route: 065
  5. DAFALGAN [Concomitant]
     Route: 065
  6. FOSAMAX [Concomitant]
     Route: 065
  7. HYDROCORTISONE [Concomitant]
     Route: 065
  8. SOLUPRED [Concomitant]
     Route: 065
  9. KALEORID [Concomitant]
     Route: 065

REACTIONS (8)
  - DIZZINESS [None]
  - HAEMATOMA [None]
  - HAEMORRHAGE [None]
  - HYPOTENSION [None]
  - INCORRECT DOSE ADMINISTERED [None]
  - PEDAL PULSE ABNORMAL [None]
  - SKIN LACERATION [None]
  - SPONTANEOUS HAEMATOMA [None]
